FAERS Safety Report 13871340 (Version 4)
Quarter: 2019Q3

REPORT INFORMATION
  Report Type: Spontaneous
  Country: US (occurrence: US)
  Receive Date: 20170816
  Receipt Date: 20190805
  Transmission Date: 20191004
  Serious: Yes (Other)
  Sender: FDA-Public Use
  Company Number: US-PFIZER INC-2016357329

PATIENT
  Age: 53 Year
  Sex: Male
  Weight: 72 kg

DRUGS (33)
  1. LYRICA [Suspect]
     Active Substance: PREGABALIN
     Indication: NEUROPATHY PERIPHERAL
     Dosage: 75 MG, 2X/DAY
     Route: 048
  2. LYRICA [Suspect]
     Active Substance: PREGABALIN
     Indication: NERVE INJURY
  3. VENTOLIN HFA [Concomitant]
     Active Substance: ALBUTEROL SULFATE
     Dosage: UNK UNK, AS NEEDED (1 IN INH, 1-2 IN INHALATION PRN; Q4-6H PRN)
  4. POTASSIUM GLUCONATE [Concomitant]
     Active Substance: POTASSIUM GLUCONATE
     Dosage: 595 MG, DAILY
     Route: 048
  5. DOXAZOSIN [Concomitant]
     Active Substance: DOXAZOSIN MESYLATE
     Indication: PROSTATOMEGALY
     Dosage: 4 MG, 1X/DAY
  6. XANAX [Concomitant]
     Active Substance: ALPRAZOLAM
     Indication: SLEEP DISORDER
     Dosage: 0.5 MG, 1X/DAY (0.5 MG TABLET AT NIGHT)
  7. ZANAFLEX [Concomitant]
     Active Substance: TIZANIDINE HYDROCHLORIDE
     Dosage: 4 MG, 1X/DAY (EVERY DAY AT BEDTIME)
     Route: 048
  8. TIZANIDINE. [Concomitant]
     Active Substance: TIZANIDINE
     Indication: MUSCLE SPASMS
     Dosage: 4 MG, 1X/DAY (AT NIGHT)
  9. DILANTIN [Concomitant]
     Active Substance: PHENYTOIN
     Indication: SEIZURE
     Dosage: 600 MG, UNK (EVEN HAD TO GO UP TO 6 CAPSULES BEFORE)
  10. IBUPROFEN. [Concomitant]
     Active Substance: IBUPROFEN
     Indication: INFLAMMATION
     Dosage: 800 MG, DAILY
     Route: 048
  11. ZESTRIL [Concomitant]
     Active Substance: LISINOPRIL
     Dosage: 5 MG, DAILY (0.5 TAB ORAL EVERY DAY)
  12. GLYBURIDE. [Concomitant]
     Active Substance: GLYBURIDE
     Dosage: 1.25 MG, AS NEEDED [EVERY DAY PRN]
     Route: 048
  13. CITALOPRAM [Concomitant]
     Active Substance: CITALOPRAM HYDROBROMIDE
     Indication: MOOD ALTERED
  14. HYDROCODONE [Concomitant]
     Active Substance: HYDROCODONE
     Indication: PAIN
     Dosage: 1 DF (10/325), 4X/DAY (10-325MG ONE TABLET, FOUR TIMES A DAY)
  15. DILANTIN [Concomitant]
     Active Substance: PHENYTOIN
     Dosage: 400 MG, 1X/DAY (4 CAP ORAL Q BED TIME)
     Route: 048
  16. FLONASE [Concomitant]
     Active Substance: FLUTICASONE PROPIONATE
     Dosage: 16 G, AS NEEDED [1 SPR NASAL QD PRN]
     Route: 045
  17. OMEPRAZOLE. [Concomitant]
     Active Substance: OMEPRAZOLE
     Indication: GASTRIC ULCER
     Dosage: 40 MG, DAILY
  18. CELEXA [Concomitant]
     Active Substance: CITALOPRAM HYDROBROMIDE
     Dosage: 40 MG, DAILY
     Route: 048
  19. TAMSULOSIN [Concomitant]
     Active Substance: TAMSULOSIN
     Dosage: 0.4 MG, DAILY
     Route: 048
  20. VENTOLIN [Concomitant]
     Active Substance: ALBUTEROL SULFATE
     Indication: CHRONIC OBSTRUCTIVE PULMONARY DISEASE
     Dosage: UNK UNK, AS NEEDED (INHALER TWO PUFFS AS NEEDED)
  21. TRIMETHOPRIM SULFAMETHOXAZOLE [Concomitant]
     Active Substance: SULFAMETHOXAZOLE\TRIMETHOPRIM
     Indication: STAPHYLOCOCCAL INFECTION
     Dosage: 1 DF, 2X/DAY (ONE AUR TABLET ONE EVERY 12 HOURS FOR 14)
     Route: 048
     Dates: start: 20170806
  22. IBUPROFEN. [Concomitant]
     Active Substance: IBUPROFEN
     Dosage: 600 MG, 4X/DAY (TAKES 3 TABLETS FOUR TIMES A DAY)
  23. XANAX [Concomitant]
     Active Substance: ALPRAZOLAM
     Indication: RELAXATION THERAPY
     Dosage: 0.5 MG, 3X/DAY
     Route: 048
  24. MILK THISTLE [Concomitant]
     Active Substance: DIETARY SUPPLEMENT\HERBALS\MILK THISTLE
     Indication: LIVER DISORDER
     Dosage: 1 DF, 3X/DAY
  25. PRILOSEC [Concomitant]
     Active Substance: OMEPRAZOLE MAGNESIUM
     Dosage: 40 MG, DAILY
     Route: 048
  26. NORCO [Concomitant]
     Active Substance: ACETAMINOPHEN\HYDROCODONE BITARTRATE
     Dosage: 1 DF (10/325), 4X/DAY [HYDROCODONE BITARTRATE 10 MG]/[PARACETAMOL 325 MG]
     Route: 048
  27. LISINOPRIL. [Concomitant]
     Active Substance: LISINOPRIL
     Indication: BLOOD PRESSURE ABNORMAL
     Dosage: 5 MG, DAILY (10 MG HALF OF TABLET A DAY)
  28. POTASSIUM [Concomitant]
     Active Substance: POTASSIUM
     Dosage: 198 MG, 4X/DAY (99 MG; TAKES TWO FOUR TIMES DAY)
  29. LYRICA [Suspect]
     Active Substance: PREGABALIN
     Indication: SEIZURE
     Dosage: 225 MG, DAILY [THREE 75MG CAPSULES A DAY]
  30. DILANTIN [Concomitant]
     Active Substance: PHENYTOIN
     Dosage: 300 MG, 1X/DAY (THREE AT BEDTIME)
     Dates: end: 20181018
  31. IBUPROFEN. [Concomitant]
     Active Substance: IBUPROFEN
     Dosage: 1200 MG, DAILY
  32. INDOMETHACIN. [Concomitant]
     Active Substance: INDOMETHACIN
     Dosage: 50 MG, 3X/DAY
     Route: 048
  33. CITALOPRAM [Concomitant]
     Active Substance: CITALOPRAM HYDROBROMIDE
     Indication: DEPRESSION
     Dosage: 40 MG, 1X/DAY

REACTIONS (17)
  - Neuropathy peripheral [Unknown]
  - Myalgia [Unknown]
  - Fall [Unknown]
  - Weight increased [Unknown]
  - Dizziness [Not Recovered/Not Resolved]
  - Pharyngeal disorder [Unknown]
  - Muscle twitching [Unknown]
  - Drug ineffective [Unknown]
  - Dysgeusia [Not Recovered/Not Resolved]
  - Blindness [Unknown]
  - Hypoacusis [Unknown]
  - Vertigo [Unknown]
  - Contusion [Unknown]
  - Abdominal distension [Unknown]
  - Malaise [Unknown]
  - Vomiting [Recovered/Resolved]
  - Motion sickness [Not Recovered/Not Resolved]

NARRATIVE: CASE EVENT DATE: 2016
